FAERS Safety Report 24724024 (Version 1)
Quarter: 2024Q4

REPORT INFORMATION
  Report Type: Spontaneous
  Country: PL (occurrence: PL)
  Receive Date: 20241211
  Receipt Date: 20241211
  Transmission Date: 20250115
  Serious: Yes (Other)
  Sender: BEIGENE
  Company Number: PL-BEIGENE-BGN-2024-019978

PATIENT

DRUGS (1)
  1. BRUKINSA [Suspect]
     Active Substance: ZANUBRUTINIB
     Indication: Chronic lymphocytic leukaemia

REACTIONS (5)
  - Neoplasm progression [Unknown]
  - Cytomegalovirus infection reactivation [Unknown]
  - C-reactive protein increased [Unknown]
  - Respiratory symptom [Unknown]
  - Epstein-Barr virus infection [Unknown]
